FAERS Safety Report 16380987 (Version 2)
Quarter: 2019Q2

REPORT INFORMATION
  Report Type: Spontaneous
  Country: LT (occurrence: LT)
  Receive Date: 20190602
  Receipt Date: 20190607
  Transmission Date: 20190711
  Serious: Yes (Other)
  Sender: FDA-Public Use
  Company Number: PHHY2019LT122423

PATIENT
  Age: 51 Year
  Sex: Female
  Weight: 98 kg

DRUGS (23)
  1. GEMCITABINE [Suspect]
     Active Substance: GEMCITABINE\GEMCITABINE HYDROCHLORIDE
     Indication: OVARIAN EPITHELIAL CANCER STAGE I
     Dosage: 1 OT, CYCLIC (6 CYCLES)
     Route: 065
     Dates: start: 20170220, end: 20170818
  2. CARBOPLATIN. [Suspect]
     Active Substance: CARBOPLATIN
     Dosage: 1 OT, CYCLIC(6 CYCLES)
     Route: 065
     Dates: start: 20180223, end: 20181009
  3. CISPLATIN. [Suspect]
     Active Substance: CISPLATIN
     Indication: OVARIAN EPITHELIAL CANCER STAGE I
  4. PEGYLATED LIPOSOMAL DOXORUBICIN [Suspect]
     Active Substance: DOXORUBICIN
     Indication: OVARIAN EPITHELIAL CANCER STAGE I
     Dosage: UNK
     Route: 065
  5. DEXAMETHASONE. [Concomitant]
     Active Substance: DEXAMETHASONE
     Indication: PRODUCT USED FOR UNKNOWN INDICATION
     Dosage: UNK
     Route: 065
  6. GABAPENTIN. [Concomitant]
     Active Substance: GABAPENTIN
     Indication: PRODUCT USED FOR UNKNOWN INDICATION
     Dosage: 300 MG, UNK
     Route: 065
  7. PACLITAXEL. [Suspect]
     Active Substance: PACLITAXEL
     Indication: BRCA1 GENE MUTATION
     Dosage: 1 OT, CYCLIC(6 CYCLES, STABILE DISEASE)
     Route: 065
     Dates: start: 20100222, end: 20100601
  8. CARBOPLATIN. [Suspect]
     Active Substance: CARBOPLATIN
     Indication: BRCA1 GENE MUTATION
     Dosage: 1 OT, CYCLIC(6 CYCLES, STABILE DISEASE)
     Route: 065
     Dates: start: 20100222, end: 20100601
  9. PEGYLATED LIPOSOMAL DOXORUBICIN [Suspect]
     Active Substance: DOXORUBICIN
     Indication: BRCA1 GENE MUTATION
     Dosage: 1 OT, CYCLIC(6 CYCLES)
     Route: 065
     Dates: start: 20180223, end: 20181009
  10. ENDOXAN [Suspect]
     Active Substance: CYCLOPHOSPHAMIDE
     Indication: BRCA1 GENE MUTATION
     Dosage: 1 OT, CYCLIC(6 CYCLES)
     Route: 065
     Dates: start: 20090611, end: 20091012
  11. ENDOXAN [Suspect]
     Active Substance: CYCLOPHOSPHAMIDE
     Indication: OVARIAN EPITHELIAL CANCER STAGE I
     Dosage: 1 OT, CYCLIC (2 CYCLES)
     Route: 065
     Dates: start: 201110
  12. FENTANYL. [Concomitant]
     Active Substance: FENTANYL
     Indication: PRODUCT USED FOR UNKNOWN INDICATION
     Dosage: 50 UG, UNK
     Route: 065
  13. LORAZEPAM. [Concomitant]
     Active Substance: LORAZEPAM
     Indication: PRODUCT USED FOR UNKNOWN INDICATION
     Dosage: 2.5 MG, UNK
     Route: 065
  14. GEMCITABINE [Suspect]
     Active Substance: GEMCITABINE\GEMCITABINE HYDROCHLORIDE
     Indication: BRCA1 GENE MUTATION
     Dosage: UNK
     Route: 065
  15. PACLITAXEL. [Suspect]
     Active Substance: PACLITAXEL
     Indication: OVARIAN EPITHELIAL CANCER STAGE I
     Dosage: 1 OT, CYCLIC(2 CYCLES)
     Route: 065
     Dates: start: 20100709, end: 20100730
  16. CARBOPLATIN. [Suspect]
     Active Substance: CARBOPLATIN
     Dosage: 1 OT, CYCLIC(6 CYCLES)
     Route: 065
     Dates: start: 20131120, end: 20140409
  17. CARBOPLATIN. [Suspect]
     Active Substance: CARBOPLATIN
     Indication: OVARIAN EPITHELIAL CANCER STAGE I
     Dosage: 1 OT, CYCLIC(2 CYCLES)
     Route: 065
     Dates: start: 20100709, end: 20100730
  18. CARBOPLATIN. [Suspect]
     Active Substance: CARBOPLATIN
     Dosage: 1 OT, CYCLIC(2 CYCLES)
     Route: 065
     Dates: start: 201110
  19. CARBOPLATIN. [Suspect]
     Active Substance: CARBOPLATIN
     Dosage: 1 OT, CYCLIC(6 CYCLES)
     Route: 065
     Dates: start: 20170220, end: 20170818
  20. ANASTROZOLE. [Suspect]
     Active Substance: ANASTROZOLE
     Indication: OVARIAN EPITHELIAL CANCER STAGE I
     Dosage: UNK
     Route: 065
  21. ANASTROZOLE. [Suspect]
     Active Substance: ANASTROZOLE
     Indication: BRCA1 GENE MUTATION
  22. CISPLATIN. [Suspect]
     Active Substance: CISPLATIN
     Indication: BRCA1 GENE MUTATION
     Dosage: 1 OT, CYCLIC(6 CYCLES)
     Route: 065
     Dates: start: 20090611, end: 20091012
  23. ISOPTIN RR [Concomitant]
     Active Substance: VERAPAMIL HYDROCHLORIDE
     Indication: PRODUCT USED FOR UNKNOWN INDICATION
     Dosage: 120 MG, UNK
     Route: 065

REACTIONS (8)
  - Neutropenia [Unknown]
  - Metastases to central nervous system [Unknown]
  - Metastases to lymph nodes [Unknown]
  - Metastases to lymph nodes [Unknown]
  - Bone marrow failure [Unknown]
  - Metastases to retroperitoneum [Unknown]
  - Thrombocytopenia [Unknown]
  - Anaemia [Unknown]

NARRATIVE: CASE EVENT DATE: 201110
